FAERS Safety Report 11926596 (Version 1)
Quarter: 2016Q1

REPORT INFORMATION
  Report Type: Spontaneous
  Country: ES (occurrence: ES)
  Receive Date: 20160119
  Receipt Date: 20160119
  Transmission Date: 20160526
  Serious: Yes (Other)
  Sender: FDA-Public Use
  Company Number: ES-ACTAVIS-2016-00793

PATIENT
  Age: 59 Year
  Sex: Female

DRUGS (2)
  1. DOCETAXEL ACTAVIS [Suspect]
     Active Substance: DOCETAXEL
     Indication: GASTRIC CANCER
     Dosage: 90 MG, CYCLICAL (CADA 15 DIAS - EVERY 15 DAYS)
     Route: 042
     Dates: start: 20150619, end: 20151231
  2. CISPLATINO PHARMACIA [Suspect]
     Active Substance: CISPLATIN
     Indication: GASTRIC CANCER
     Dosage: 90 MG, CYCLICAL (90MG CADA 15 DIAS - 90 MG EVERY 15 DAYS)
     Route: 042
     Dates: start: 20150916, end: 20151231

REACTIONS (1)
  - Hypersensitivity [Recovered/Resolved]

NARRATIVE: CASE EVENT DATE: 20151231
